FAERS Safety Report 25728909 (Version 2)
Quarter: 2025Q3

REPORT INFORMATION
  Report Type: Spontaneous
  Country: US (occurrence: US)
  Receive Date: 20250826
  Receipt Date: 20250917
  Transmission Date: 20251020
  Serious: No
  Sender: BAUSCH AND LOMB
  Company Number: US-BAUSCHBL-2025BNL014924

PATIENT
  Age: 75 Year
  Sex: Female

DRUGS (1)
  1. BROMFENAC [Suspect]
     Active Substance: BROMFENAC
     Indication: Product used for unknown indication
     Route: 047

REACTIONS (5)
  - Pain in extremity [Unknown]
  - Product dose omission in error [Unknown]
  - Wrong technique in product usage process [Unknown]
  - Product container issue [Unknown]
  - Product use complaint [Unknown]
